FAERS Safety Report 14482279 (Version 1)
Quarter: 2018Q1

REPORT INFORMATION
  Report Type: Spontaneous
  Country: US (occurrence: US)
  Receive Date: 20180202
  Receipt Date: 20180202
  Transmission Date: 20180509
  Serious: Yes (Death)
  Sender: FDA-Public Use
  Company Number: None

PATIENT
  Age: 59 Year
  Sex: Male

DRUGS (14)
  1. SIMVASTATIN. [Concomitant]
     Active Substance: SIMVASTATIN
  2. HYOSCYAMINE. [Concomitant]
     Active Substance: HYOSCYAMINE
  3. CELECICOB [Concomitant]
  4. PANTOPRAZOLE [Concomitant]
     Active Substance: PANTOPRAZOLE
  5. LETAIRIS [Concomitant]
     Active Substance: AMBRISENTAN
  6. DEXAMETHASONE. [Concomitant]
     Active Substance: DEXAMETHASONE
  7. OXYCONTIN [Concomitant]
     Active Substance: OXYCODONE HYDROCHLORIDE
  8. OXYCODONE [Concomitant]
     Active Substance: OXYCODONE
  9. MORPHINE [Concomitant]
     Active Substance: MORPHINE
  10. LORAZEPAM. [Concomitant]
     Active Substance: LORAZEPAM
  11. LIALDA [Concomitant]
     Active Substance: MESALAMINE
  12. ADCIRCA [Suspect]
     Active Substance: TADALAFIL
     Indication: PULMONARY ARTERIAL HYPERTENSION
     Route: 048
  13. HALOPERIDOL. [Concomitant]
     Active Substance: HALOPERIDOL
  14. FENTANYL. [Concomitant]
     Active Substance: FENTANYL

REACTIONS (1)
  - Death [None]

NARRATIVE: CASE EVENT DATE: 20180130
